FAERS Safety Report 12822222 (Version 1)
Quarter: 2016Q4

REPORT INFORMATION
  Report Type: Other
  Country: JP (occurrence: JP)
  Receive Date: 20161007
  Receipt Date: 20161007
  Transmission Date: 20170207
  Serious: Yes (Other)
  Sender: FDA-Public Use
  Company Number: JP-NOVEL LABORATORIES, INC-2016-04443

PATIENT
  Age: 54 Year
  Sex: Female

DRUGS (4)
  1. METOCLOPRAMIDE. [Interacting]
     Active Substance: METOCLOPRAMIDE
     Route: 042
     Dates: start: 20130604
  2. PAROXETINE. [Interacting]
     Active Substance: PAROXETINE
     Indication: MAJOR DEPRESSION
     Route: 065
  3. PAROXETINE. [Interacting]
     Active Substance: PAROXETINE
     Route: 065
  4. METOCLOPRAMIDE. [Suspect]
     Active Substance: METOCLOPRAMIDE
     Indication: ABDOMINAL DISCOMFORT
     Route: 065

REACTIONS (3)
  - Drug interaction [Unknown]
  - Hyperprolactinaemia [Recovering/Resolving]
  - Extrapyramidal disorder [Recovering/Resolving]
